FAERS Safety Report 9513775 (Version 3)
Quarter: 2013Q4

REPORT INFORMATION
  Report Type: Report from Study
  Country: BR (occurrence: BR)
  Receive Date: 20130910
  Receipt Date: 20131029
  Transmission Date: 20140711
  Serious: Yes (Other)
  Sender: FDA-Public Use
  Company Number: PHHY2013BR091557

PATIENT
  Age: 77 Year
  Sex: Female

DRUGS (1)
  1. FORASEQ [Suspect]
     Indication: RESPIRATORY DISORDER
     Dosage: 2 DF, DAILY

REACTIONS (8)
  - Wound [Recovering/Resolving]
  - Skin discolouration [Recovering/Resolving]
  - Abasia [Recovering/Resolving]
  - Infection [Unknown]
  - Erysipelas [Unknown]
  - Local swelling [Recovering/Resolving]
  - Erythema [Unknown]
  - Feeling abnormal [Unknown]
